FAERS Safety Report 6211087-8 (Version None)
Quarter: 2009Q2

REPORT INFORMATION
  Report Type: 
  Country: None (occurrence: None)
  Receive Date: 20090602
  Receipt Date: 20090528
  Transmission Date: 20091009
  Serious: Yes (Hospitalization)
  Sender: FDA-Public Use
  Company Number: IT-BRISTOL-MYERS SQUIBB COMPANY-14640148

PATIENT
  Sex: Male

DRUGS (2)
  1. REYATAZ [Suspect]
     Dosage: INTERRUPTED ON MAY2009
     Route: 048
     Dates: start: 20090201
  2. RITONAVIR [Suspect]
     Route: 048
     Dates: start: 20090201, end: 20090501

REACTIONS (1)
  - BLOOD CREATININE INCREASED [None]
